FAERS Safety Report 5063823-4 (Version None)
Quarter: 2006Q3

REPORT INFORMATION
  Report Type: 
  Country: None (occurrence: None)
  Receive Date: 20060703
  Receipt Date: 20060420
  Transmission Date: 20061208
  Serious: No
  Sender: FDA-Public Use
  Company Number: 2006S1003475

PATIENT
  Age: 62 Year
  Sex: Male
  Weight: 81.6475 kg

DRUGS (12)
  1. CLOZAPINE [Suspect]
     Indication: SCHIZOPHRENIA
     Dosage: SEE IMAGE
     Route: 048
     Dates: start: 20041217
  2. CLOZAPINE [Suspect]
     Indication: SCHIZOPHRENIA
     Dosage: SEE IMAGE
     Route: 048
     Dates: start: 20041217
  3. SIMVASTATIN [Concomitant]
  4. PARACETAMOL/TRAMADOL HYDROCHLORIDE [Concomitant]
  5. LORAZEPAM [Concomitant]
  6. ESCITALOPRAM [Concomitant]
  7. METOPROLOL SUCCINATE [Concomitant]
  8. ESOMEPRAZOLE MAGNESIUM [Concomitant]
  9. CYANOCOBALAMIN [Concomitant]
  10. GLYCERYL TRINITRATE [Concomitant]
  11. ACETYLSALICYLIC ACID SRT [Concomitant]
  12. PARACETAMOL [Concomitant]

REACTIONS (1)
  - GRANULOCYTOPENIA [None]
